FAERS Safety Report 16676823 (Version 2)
Quarter: 2022Q1

REPORT INFORMATION
  Report Type: Spontaneous
  Country: CA (occurrence: CA)
  Receive Date: 20190807
  Receipt Date: 20220103
  Transmission Date: 20220423
  Serious: Yes (Other)
  Sender: FDA-Public Use
  Company Number: CA-SA-2019SA211212

PATIENT
  Sex: Female

DRUGS (16)
  1. PLAQUENIL [Suspect]
     Active Substance: HYDROXYCHLOROQUINE SULFATE
     Indication: Product used for unknown indication
     Dosage: 400 MG, QD
  2. LEFLUNOMIDE [Suspect]
     Active Substance: LEFLUNOMIDE
     Indication: Product used for unknown indication
     Dosage: 20 MG, QD
  3. DICLOFENAC SODIUM [Suspect]
     Active Substance: DICLOFENAC SODIUM
     Indication: Rheumatoid arthritis
  4. PANTOPRAZOLE SODIUM [Suspect]
     Active Substance: PANTOPRAZOLE SODIUM
     Indication: Product used for unknown indication
  5. ATENOLOL [Suspect]
     Active Substance: ATENOLOL
     Indication: Product used for unknown indication
     Dosage: 25 MG, QD
  6. PANTOPRAZOLE [Suspect]
     Active Substance: PANTOPRAZOLE
     Indication: Product used for unknown indication
     Dosage: 40 MILLIGRAM, ONCE A DAY
     Route: 065
  7. METHOTREXATE [Suspect]
     Active Substance: METHOTREXATE
     Indication: Rheumatoid arthritis
     Dosage: 20 MILLIGRAM, 1 EVERY 2 WEEKS
     Route: 048
  8. SULFASALAZINE [Suspect]
     Active Substance: SULFASALAZINE
     Indication: Rheumatoid arthritis
     Dosage: 1000 MG, BID
     Route: 048
  9. FOLIC ACID [Suspect]
     Active Substance: FOLIC ACID
     Indication: Product used for unknown indication
     Dosage: 5 MILLIGRAM, 2 EVERY 1 WEEK
     Route: 065
  10. NAPROXEN [Suspect]
     Active Substance: NAPROXEN
     Indication: Product used for unknown indication
     Dosage: 1000 MILLIGRAM, ONCE A DAY
     Route: 048
  11. ASCORBIC ACID\FERROUS FUMARATE\FOLIC ACID [Suspect]
     Active Substance: ASCORBIC ACID\FERROUS FUMARATE\FOLIC ACID
     Dosage: UNK, ONCE A DAY
     Route: 065
  12. ENBREL [Suspect]
     Active Substance: ETANERCEPT
     Indication: Rheumatoid arthritis
     Dosage: UNK
     Route: 058
  13. HUMIRA [Suspect]
     Active Substance: ADALIMUMAB
     Indication: Product used for unknown indication
     Dosage: UNK
     Route: 058
  14. ORENCIA [Suspect]
     Active Substance: ABATACEPT
     Indication: Product used for unknown indication
     Dosage: UNK
     Route: 065
  15. CELEBREX [Concomitant]
     Active Substance: CELECOXIB
     Indication: Rheumatoid arthritis
     Dosage: 200 MILLIGRAM, ONCE A DAY
     Route: 048
  16. PREDNISONE [Concomitant]
     Active Substance: PREDNISONE
     Indication: Product used for unknown indication
     Dosage: 5 MILLIGRAM, ONCE A DAY
     Route: 065

REACTIONS (21)
  - Rheumatoid arthritis [Unknown]
  - Arthralgia [Unknown]
  - Liver disorder [Unknown]
  - Musculoskeletal pain [Unknown]
  - Musculoskeletal stiffness [Unknown]
  - Myalgia [Unknown]
  - Pain [Unknown]
  - Rheumatoid lung [Unknown]
  - Disability [Unknown]
  - Red blood cell count decreased [Unknown]
  - Haemoglobin decreased [Unknown]
  - Peripheral swelling [Unknown]
  - C-reactive protein increased [Unknown]
  - Pain in extremity [Unknown]
  - Joint swelling [Unknown]
  - Haematocrit decreased [Unknown]
  - Red blood cell sedimentation rate abnormal [Unknown]
  - Condition aggravated [Unknown]
  - Rash [Unknown]
  - Drug ineffective [Unknown]
  - Contraindicated product administered [Unknown]
